FAERS Safety Report 18351538 (Version 1)
Quarter: 2020Q4

REPORT INFORMATION
  Report Type: Not Available
  Country: None (occurrence: None)
  Receive Date: 20201006
  Receipt Date: 20201006
  Transmission Date: 20210114
  Serious: No
  Sender: FDA-Public Use
  Company Number: US-AKORN-152422

PATIENT
  Age: 79 Year
  Sex: Female

DRUGS (1)
  1. ZIOPTAN [Suspect]
     Active Substance: TAFLUPROST

REACTIONS (4)
  - Blister [Recovered/Resolved]
  - Headache [Recovered/Resolved]
  - Dysphonia [Recovered/Resolved]
  - Pruritus [Recovered/Resolved]
